FAERS Safety Report 8613964-7 (Version None)
Quarter: 2012Q3

REPORT INFORMATION
  Report Type: 
  Country: None (occurrence: None)
  Receive Date: 20120809
  Receipt Date: 20120806
  Transmission Date: 20120928
  Serious: Yes (Other)
  Sender: FDA-Public Use
  Company Number: GER/UKI/12/0025327

PATIENT
  Age: 49 Year
  Sex: Male

DRUGS (5)
  1. AGOMELATINE (AGOMELATINE) [Concomitant]
  2. OMEPRAZOLE [Concomitant]
  3. SIMVASTATIN [Concomitant]
  4. OLANZAPINE [Suspect]
     Indication: AFFECTIVE DISORDER
     Dosage: 5 MG, ORAL
     Route: 048
     Dates: start: 20120515, end: 20120525
  5. CLONAZEPAM [Concomitant]

REACTIONS (3)
  - EPISTAXIS [None]
  - RECTAL HAEMORRHAGE [None]
  - GINGIVAL BLEEDING [None]
